FAERS Safety Report 13794842 (Version 4)
Quarter: 2017Q4

REPORT INFORMATION
  Report Type: Spontaneous
  Country: US (occurrence: US)
  Receive Date: 20170726
  Receipt Date: 20171013
  Transmission Date: 20180320
  Serious: Yes (Other)
  Sender: FDA-Public Use
  Company Number: US-PFIZER INC-2017323351

PATIENT
  Age: 42 Year
  Sex: Female
  Weight: 73.94 kg

DRUGS (3)
  1. ETODOLAC. [Concomitant]
     Active Substance: ETODOLAC
     Indication: OVULATION PAIN
  2. ETODOLAC. [Concomitant]
     Active Substance: ETODOLAC
     Indication: DYSMENORRHOEA
     Dosage: 400 MG, AS NEEDED, (TWICE A DAY AS NEEDED)
     Dates: start: 201703
  3. XELJANZ [Suspect]
     Active Substance: TOFACITINIB CITRATE
     Indication: RHEUMATOID ARTHRITIS
     Dosage: 5 MG, 2X/DAY
     Route: 048
     Dates: start: 201609, end: 201706

REACTIONS (16)
  - Paraesthesia [Not Recovered/Not Resolved]
  - Condition aggravated [Recovering/Resolving]
  - Dermatitis [Recovering/Resolving]
  - Arthropod bite [Not Recovered/Not Resolved]
  - Pain [Recovering/Resolving]
  - Scratch [Recovering/Resolving]
  - Erythema [Recovering/Resolving]
  - Impaired healing [Recovering/Resolving]
  - Blister [Recovering/Resolving]
  - Cellulitis [Unknown]
  - Allergy to arthropod bite [Not Recovered/Not Resolved]
  - Pruritus [Not Recovered/Not Resolved]
  - Skin discolouration [Recovering/Resolving]
  - Swelling [Not Recovered/Not Resolved]
  - Burning sensation [Not Recovered/Not Resolved]
  - Intentional product misuse [Unknown]

NARRATIVE: CASE EVENT DATE: 201610
